FAERS Safety Report 11874814 (Version 1)
Quarter: 2015Q4

REPORT INFORMATION
  Report Type: Report from Study
  Country: US (occurrence: US)
  Receive Date: 20151229
  Receipt Date: 20151229
  Transmission Date: 20160305
  Serious: No
  Sender: FDA-Public Use
  Company Number: PHEH2015US001421

PATIENT
  Age: 9 Year
  Sex: Male

DRUGS (2)
  1. TOBI [Suspect]
     Active Substance: TOBRAMYCIN
     Indication: PSEUDOMONAS INFECTION
     Dosage: 300 MG, BID (14 DAYS ON AND 14 DAYS OFF )
     Route: 055
     Dates: start: 20140626
  2. TOBI [Suspect]
     Active Substance: TOBRAMYCIN
     Indication: BRONCHIECTASIS

REACTIONS (2)
  - Product use issue [Unknown]
  - Inappropriate schedule of drug administration [Unknown]

NARRATIVE: CASE EVENT DATE: 20140626
